FAERS Safety Report 17832703 (Version 1)
Quarter: 2020Q2

REPORT INFORMATION
  Report Type: Spontaneous
  Country: US (occurrence: US)
  Receive Date: 20200528
  Receipt Date: 20200528
  Transmission Date: 20200714
  Serious: No
  Sender: FDA-Public Use
  Company Number: US-UCBSA-2020005605

PATIENT
  Sex: Female

DRUGS (3)
  1. CIMZIA [Suspect]
     Active Substance: CERTOLIZUMAB PEGOL
     Indication: PSORIASIS
     Dosage: 400 MILLIGRAM
     Route: 058
  2. CIMZIA [Suspect]
     Active Substance: CERTOLIZUMAB PEGOL
     Dosage: 200 MILLIGRAM, UNK
     Route: 058
     Dates: start: 201905
  3. HALOG [Concomitant]
     Active Substance: HALCINONIDE
     Indication: PSORIASIS
     Dosage: UNK
     Dates: start: 2020

REACTIONS (3)
  - Product dose omission [Unknown]
  - Psoriasis [Recovered/Resolved]
  - Off label use [Unknown]
